FAERS Safety Report 10353155 (Version 1)
Quarter: 2014Q3

REPORT INFORMATION
  Report Type: Spontaneous
  Country: JP (occurrence: JP)
  Receive Date: 20140730
  Receipt Date: 20140730
  Transmission Date: 20150326
  Serious: Yes (Other)
  Sender: FDA-Public Use
  Company Number: PHHY2012JP133134

PATIENT

DRUGS (3)
  1. RADIATION [Concomitant]
     Active Substance: RADIATION THERAPY
  2. ANALGESICS [Concomitant]
     Active Substance: UNSPECIFIED INGREDIENT
  3. ZOMETA [Suspect]
     Active Substance: ZOLEDRONIC ACID
     Indication: METASTASES TO BONE
     Dosage: 1 DF, 4MG/100ML
     Dates: start: 20080901

REACTIONS (2)
  - Pneumonia aspiration [Unknown]
  - Pyrexia [Unknown]
